FAERS Safety Report 23896811 (Version 1)
Quarter: 2024Q2

REPORT INFORMATION
  Report Type: Spontaneous
  Country: US (occurrence: None)
  Receive Date: 20240524
  Receipt Date: 20240524
  Transmission Date: 20240716
  Serious: Yes (Other)
  Sender: FDA-Public Use
  Company Number: None

PATIENT
  Age: 60 Year
  Sex: Male

DRUGS (11)
  1. REPATHA [Suspect]
     Active Substance: EVOLOCUMAB
     Indication: Hypercholesterolaemia
     Dosage: FREQUENCY : EVERY OTHER WEEK;?
     Route: 058
     Dates: start: 20240307, end: 20240415
  2. metoprolol succinate ER [Concomitant]
  3. AMLODIPINE [Concomitant]
     Active Substance: AMLODIPINE BESYLATE
  4. FLECAINIDE [Concomitant]
     Active Substance: FLECAINIDE
  5. VITAMINS [Concomitant]
     Active Substance: VITAMINS
  6. ELIQUIS [Concomitant]
     Active Substance: APIXABAN
  7. ALLOPURINOL [Concomitant]
     Active Substance: ALLOPURINOL
  8. TOPIRAMATE [Concomitant]
     Active Substance: TOPIRAMATE
  9. LAMOTRIGINE [Concomitant]
     Active Substance: LAMOTRIGINE
  10. TELMISARTAN [Concomitant]
     Active Substance: TELMISARTAN
  11. NEXLETOL [Concomitant]
     Active Substance: BEMPEDOIC ACID

REACTIONS (2)
  - Rash [None]
  - Rash [None]

NARRATIVE: CASE EVENT DATE: 20240425
